FAERS Safety Report 4267286-8 (Version None)
Quarter: 2004Q1

REPORT INFORMATION
  Report Type: 
  Country: None (occurrence: None)
  Receive Date: 20040108
  Receipt Date: 20031030
  Transmission Date: 20041129
  Serious: Yes (Hospitalization)
  Sender: FDA-Public Use
  Company Number: WAES 0311USA00737

PATIENT
  Age: 52 Year
  Sex: Male
  Weight: 80 kg

DRUGS (6)
  1. CELIPROLOL HYDROCHLORIDE [Concomitant]
  2. DOXAZOSIN MESYLATE [Suspect]
     Route: 048
  3. COZAAR [Suspect]
     Route: 048
  4. PROPOFOL [Concomitant]
  5. SEVOFLURANE [Concomitant]
  6. SIMVASTATIN [Concomitant]

REACTIONS (5)
  - BLOOD PRESSURE FLUCTUATION [None]
  - ELECTROCARDIOGRAM ST SEGMENT ABNORMAL [None]
  - FALL [None]
  - HYPOTENSION [None]
  - OPEN FRACTURE [None]
